FAERS Safety Report 24534864 (Version 1)
Quarter: 2024Q4

REPORT INFORMATION
  Report Type: Spontaneous
  Country: GB (occurrence: GB)
  Receive Date: 20241022
  Receipt Date: 20241022
  Transmission Date: 20250114
  Serious: Yes (Other)
  Sender: SANDOZ
  Company Number: None

PATIENT
  Sex: Male

DRUGS (2)
  1. ATORVASTATIN [Suspect]
     Active Substance: ATORVASTATIN
     Indication: Prophylaxis
     Dosage: 80 MG, QD (AT NIGHT)
     Route: 048
     Dates: end: 20180729
  2. FUSIDIC ACID [Suspect]
     Active Substance: FUSIDIC ACID
     Indication: Wound infection
     Route: 048
     Dates: end: 20180728

REACTIONS (6)
  - Chromaturia [Unknown]
  - Polymyositis [Unknown]
  - Blood creatinine increased [Unknown]
  - Rhabdomyolysis [Recovered/Resolved with Sequelae]
  - Myalgia [Unknown]
  - Labelled drug-drug interaction medication error [Unknown]
